FAERS Safety Report 9352714 (Version 1)
Quarter: 2013Q2

REPORT INFORMATION
  Report Type: Report from Study
  Country: US (occurrence: US)
  Receive Date: 20130618
  Receipt Date: 20130618
  Transmission Date: 20140414
  Serious: Yes (Hospitalization)
  Sender: FDA-Public Use
  Company Number: US-PFIZER INC-2013168425

PATIENT
  Age: 4 Month
  Sex: 0
  Weight: 6.35 kg

DRUGS (1)
  1. IBUPROFEN [Suspect]
     Indication: PYREXIA
     Dosage: 50MG/5ML
     Route: 048

REACTIONS (1)
  - Viral infection [Unknown]
